FAERS Safety Report 5993726-X (Version None)
Quarter: 2008Q4

REPORT INFORMATION
  Report Type: 
  Country: None (occurrence: None)
  Receive Date: 20081212
  Receipt Date: 20081201
  Transmission Date: 20090506
  Serious: Yes (Hospitalization)
  Sender: FDA-Public Use
  Company Number: DE-ELI_LILLY_AND_COMPANY-DE200811001075

PATIENT
  Sex: Male
  Weight: 103 kg

DRUGS (11)
  1. BYETTA [Suspect]
     Dosage: 5 UG, UNKNOWN
     Route: 065
     Dates: start: 20080401
  2. BYETTA [Suspect]
     Dosage: 10 UG, UNKNOWN
     Route: 065
     Dates: end: 20081031
  3. DELIX [Concomitant]
     Dosage: 5 MG, UNKNOWN
     Route: 065
  4. CONCOR /00802602/ [Concomitant]
     Dosage: 5 MG, UNKNOWN
     Route: 065
  5. NOVAROK [Concomitant]
     Dosage: 5 MG, UNKNOWN
     Route: 065
  6. ASPIRIN [Concomitant]
     Dosage: 100 MG, UNKNOWN
     Route: 065
  7. INEGY [Concomitant]
     Dosage: 10 MG, UNKNOWN
     Route: 065
  8. INEGY [Concomitant]
     Dosage: 40 MG, UNKNOWN
     Route: 065
  9. LEVOTHYROXINE SODIUM [Concomitant]
     Dosage: 100 UG, UNKNOWN
     Route: 065
  10. PANTOZOL [Concomitant]
     Dosage: 20 MG, UNKNOWN
     Route: 065
  11. METFORMIN HCL [Concomitant]
     Dosage: 1000 MG, UNKNOWN
     Route: 065
     Dates: start: 20080901

REACTIONS (1)
  - HYPERTRIGLYCERIDAEMIA [None]
